FAERS Safety Report 21412461 (Version 1)
Quarter: 2022Q4

REPORT INFORMATION
  Report Type: Spontaneous
  Country: US (occurrence: None)
  Receive Date: 20221004
  Receipt Date: 20221004
  Transmission Date: 20230113
  Serious: Yes (Hospitalization)
  Sender: FDA-Public Use
  Company Number: None

PATIENT
  Sex: Female
  Weight: 93.44 kg

DRUGS (27)
  1. IBRANCE [Suspect]
     Active Substance: PALBOCICLIB
     Indication: Breast cancer
     Dosage: FREQUENCY : DAILY;?
     Route: 048
     Dates: start: 201905
  2. ACETAMINOPHEN [Concomitant]
     Active Substance: ACETAMINOPHEN
  3. ALKA-SELTZER [Concomitant]
     Active Substance: ANHYDROUS CITRIC ACID\ASPIRIN\SODIUM BICARBONATE
  4. APIDRA SOLOSTAR [Concomitant]
     Active Substance: INSULIN GLULISINE
  5. ARMOUR THYROID [Concomitant]
     Active Substance: THYROID, PORCINE
  6. ASPIRIN [Concomitant]
     Active Substance: ASPIRIN
  7. BACLOFEN [Concomitant]
     Active Substance: BACLOFEN
  8. BISACODYL [Concomitant]
     Active Substance: BISACODYL
  9. CARBIDOPA\LEVODOPA [Concomitant]
     Active Substance: CARBIDOPA\LEVODOPA
  10. CARDIZEM LA [Concomitant]
     Active Substance: DILTIAZEM HYDROCHLORIDE
  11. Carvadilol [Concomitant]
  12. CYMBALTA [Concomitant]
     Active Substance: DULOXETINE HYDROCHLORIDE
  13. EX-LAX REGULAR STRENGTH STIMULANT LAXATIVE [Concomitant]
     Active Substance: SENNOSIDES
  14. FLECTOR [Concomitant]
     Active Substance: DICLOFENAC EPOLAMINE
  15. ACETAMINOPHEN\HYDROCODONE [Concomitant]
     Active Substance: ACETAMINOPHEN\HYDROCODONE
  16. HYDROXYZINE [Concomitant]
     Active Substance: HYDROXYZINE HYDROCHLORIDE
  17. LANTUS SOLOSTAR [Concomitant]
     Active Substance: INSULIN GLARGINE
  18. LETROZOLE [Concomitant]
     Active Substance: LETROZOLE
  19. MAGNESIUM [Concomitant]
     Active Substance: MAGNESIUM
  20. METFORMIN [Concomitant]
     Active Substance: METFORMIN HYDROCHLORIDE
  21. METHOCARBAMOL [Concomitant]
     Active Substance: METHOCARBAMOL
  22. OMEPRAZOLE [Concomitant]
     Active Substance: OMEPRAZOLE
  23. ROPINIROLE [Concomitant]
     Active Substance: ROPINIROLE
  24. Tramdol [Concomitant]
  25. TRICOR [Concomitant]
     Active Substance: FENOFIBRATE
  26. VALSARTAN [Concomitant]
     Active Substance: VALSARTAN
  27. VITAMIN D3 [Concomitant]
     Active Substance: CHOLECALCIFEROL

REACTIONS (2)
  - Rib fracture [None]
  - Therapy interrupted [None]
